FAERS Safety Report 10237906 (Version 1)
Quarter: 2014Q2

REPORT INFORMATION
  Report Type: Spontaneous
  Country: US (occurrence: US)
  Receive Date: 20140616
  Receipt Date: 20140616
  Transmission Date: 20141212
  Serious: No
  Sender: FDA-Public Use
  Company Number: US-BIOGENIDEC-2014BI055583

PATIENT
  Age: 51 Year
  Sex: Female

DRUGS (3)
  1. AVONEX [Suspect]
     Indication: MULTIPLE SCLEROSIS
     Route: 030
  2. AVONEX [Suspect]
     Indication: MULTIPLE SCLEROSIS
     Route: 030
     Dates: start: 20130201
  3. AVONEX [Suspect]
     Indication: MULTIPLE SCLEROSIS
     Route: 030
     Dates: start: 20130212, end: 20140709

REACTIONS (12)
  - Feeling cold [Recovered/Resolved]
  - Blood pressure increased [Not Recovered/Not Resolved]
  - Blood magnesium decreased [Not Recovered/Not Resolved]
  - Hypoaesthesia [Not Recovered/Not Resolved]
  - Multiple sclerosis [Unknown]
  - Dizziness [Unknown]
  - Anxiety [Unknown]
  - Thrombocytopenia [Recovered/Resolved]
  - Paraesthesia [Not Recovered/Not Resolved]
  - Time perception altered [Not Recovered/Not Resolved]
  - Influenza like illness [Unknown]
  - Pain in extremity [Not Recovered/Not Resolved]
